FAERS Safety Report 20498816 (Version 2)
Quarter: 2022Q1

REPORT INFORMATION
  Report Type: Spontaneous
  Country: US (occurrence: US)
  Receive Date: 20220222
  Receipt Date: 20220305
  Transmission Date: 20220423
  Serious: No
  Sender: FDA-Public Use
  Company Number: US-UNITED THERAPEUTICS-UNT-2022-000543

PATIENT
  Age: 65 Year
  Sex: Female
  Weight: 42.63 kg

DRUGS (6)
  1. REMODULIN [Suspect]
     Active Substance: TREPROSTINIL
     Indication: Pulmonary arterial hypertension
     Dosage: UNK UNK, CONTINUING
     Route: 058
     Dates: start: 20211210
  2. REMODULIN [Suspect]
     Active Substance: TREPROSTINIL
     Dosage: 0.0075 ?G/KG, CONTINUING
     Route: 058
  3. REMODULIN [Suspect]
     Active Substance: TREPROSTINIL
     Dosage: 0.014 ?G/KG, CONTINUING
     Route: 058
  4. AMBRISENTAN [Suspect]
     Active Substance: AMBRISENTAN
     Indication: Product used for unknown indication
     Dosage: UNK
     Route: 065
     Dates: end: 20220220
  5. AMBRISENTAN [Suspect]
     Active Substance: AMBRISENTAN
     Dosage: UNK
     Route: 065
     Dates: start: 20220227
  6. TADALAFIL [Concomitant]
     Active Substance: TADALAFIL
     Indication: Product used for unknown indication
     Dosage: UNK
     Route: 065

REACTIONS (17)
  - Rash [Unknown]
  - Infusion site pain [Not Recovered/Not Resolved]
  - Infusion site pruritus [Unknown]
  - Infusion site erythema [Unknown]
  - Infusion site swelling [Unknown]
  - Subcutaneous drug absorption impaired [Unknown]
  - Malaise [Unknown]
  - Swelling [Unknown]
  - Infusion site infection [Unknown]
  - Device dislocation [Unknown]
  - Device maintenance issue [Unknown]
  - Wrong technique in device usage process [Unknown]
  - Diarrhoea [Unknown]
  - Muscle spasms [Unknown]
  - Myalgia [Unknown]
  - Bone pain [Unknown]
  - Dizziness [Unknown]

NARRATIVE: CASE EVENT DATE: 20220117
